FAERS Safety Report 19424028 (Version 1)
Quarter: 2021Q2

REPORT INFORMATION
  Report Type: Spontaneous
  Country: US (occurrence: US)
  Receive Date: 20210616
  Receipt Date: 20210616
  Transmission Date: 20210717
  Serious: No
  Sender: FDA-Public Use
  Company Number: US-BAYER-2021-157823

PATIENT
  Sex: Female

DRUGS (1)
  1. ALEVE PM [Suspect]
     Active Substance: DIPHENHYDRAMINE HYDROCHLORIDE\NAPROXEN SODIUM
     Dosage: HAVE 1 CAPLET BUT I CUT IT INTO HALF AND I TOOK THE 1ST HAFT BUT THE OTHER HALF
     Route: 065

REACTIONS (3)
  - Incorrect dose administered [None]
  - Wrong technique in product usage process [Unknown]
  - Product use complaint [None]
